FAERS Safety Report 19230054 (Version 1)
Quarter: 2021Q2

REPORT INFORMATION
  Report Type: Spontaneous
  Country: US (occurrence: US)
  Receive Date: 20210506
  Receipt Date: 20210506
  Transmission Date: 20210717
  Serious: Yes (Other)
  Sender: FDA-Public Use
  Company Number: None

PATIENT
  Age: 25 Year
  Sex: Female
  Weight: 76.5 kg

DRUGS (5)
  1. PFIZER BIONTECH [Concomitant]
     Dates: start: 20210403, end: 20210424
  2. AIMOVIG [Concomitant]
     Active Substance: ERENUMAB-AOOE
     Dates: start: 20180530
  3. LISINOPRIL 10 MG [Concomitant]
     Active Substance: LISINOPRIL
     Dates: start: 20170809
  4. AIMOVIG [Suspect]
     Active Substance: ERENUMAB-AOOE
     Indication: MIGRAINE
     Dates: start: 20180530
  5. PFIZER?BIONTECH COVID?19 VACCINE [Suspect]
     Active Substance: TOZINAMERAN
     Dates: start: 20210403, end: 20210424

REACTIONS (6)
  - Pyrexia [None]
  - Nausea [None]
  - Headache [None]
  - Eye swelling [None]
  - Lymphadenopathy [None]
  - Chills [None]

NARRATIVE: CASE EVENT DATE: 20210505
